FAERS Safety Report 4374891-7 (Version None)
Quarter: 2004Q2

REPORT INFORMATION
  Report Type: 
  Country: None (occurrence: None)
  Receive Date: 20040604
  Receipt Date: 20040528
  Transmission Date: 20050107
  Serious: Yes (Life-Threatening, Hospitalization)
  Sender: FDA-Public Use
  Company Number: 2004215988DK

PATIENT
  Age: 64 Year
  Sex: Female
  Weight: 79.1 kg

DRUGS (6)
  1. SULFASALAZINE [Suspect]
     Indication: ARTHRITIS
     Dosage: 500 MG, QID, ORAL
     Route: 048
     Dates: start: 20040406, end: 20040509
  2. LANSOPRAZOLE [Concomitant]
  3. RAMIPRIL [Concomitant]
  4. SIMVASTATIN [Concomitant]
  5. ORABET (TOLBUTAMIDE) [Concomitant]
  6. INSULATARD NPH HUMAN [Concomitant]

REACTIONS (2)
  - INTERSTITIAL LUNG DISEASE [None]
  - PULMONARY OEDEMA [None]
